FAERS Safety Report 10520137 (Version 2)
Quarter: 2014Q4

REPORT INFORMATION
  Report Type: Spontaneous
  Country: US (occurrence: US)
  Receive Date: 20141015
  Receipt Date: 20141015
  Transmission Date: 20150528
  Serious: Yes (Life-Threatening, Hospitalization, Other)
  Sender: FDA-Public Use
  Company Number: US-LUNDBECK-DKLU1093199

PATIENT
  Age: 8 Month
  Sex: Female
  Weight: 13 kg

DRUGS (7)
  1. DEPAKOTE [Concomitant]
     Active Substance: DIVALPROEX SODIUM
     Indication: PRODUCT USED FOR UNKNOWN INDICATION
  2. SABRIL [Suspect]
     Active Substance: VIGABATRIN
     Indication: INFANTILE SPASMS
     Dosage: TITRATION UP TO 150 MG/KG/DAY
     Route: 048
     Dates: start: 201305
  3. SABRIL [Suspect]
     Active Substance: VIGABATRIN
     Route: 048
     Dates: start: 20130814
  4. TOPAMAX [Concomitant]
     Active Substance: TOPIRAMATE
     Indication: PRODUCT USED FOR UNKNOWN INDICATION
  5. CARNITOR [Concomitant]
     Active Substance: LEVOCARNITINE
     Indication: PRODUCT USED FOR UNKNOWN INDICATION
  6. SABRIL [Suspect]
     Active Substance: VIGABATRIN
     Route: 048
     Dates: start: 201307
  7. SABRIL [Suspect]
     Active Substance: VIGABATRIN
     Indication: EPILEPSY
     Dates: start: 20130416

REACTIONS (3)
  - Respiratory distress [Recovered/Resolved]
  - Dysphagia [Recovered/Resolved with Sequelae]
  - Infantile spasms [Recovered/Resolved]

NARRATIVE: CASE EVENT DATE: 20130708
